FAERS Safety Report 16114867 (Version 1)
Quarter: 2019Q1

REPORT INFORMATION
  Report Type: Spontaneous
  Country: JP (occurrence: JP)
  Receive Date: 20190325
  Receipt Date: 20190325
  Transmission Date: 20190418
  Serious: Yes (Other)
  Sender: FDA-Public Use
  Company Number: JP-ANIPHARMA-2019-JP-000049

PATIENT
  Age: 19 Year
  Sex: Male

DRUGS (5)
  1. ENALAPRIL MALEATE. [Concomitant]
     Active Substance: ENALAPRIL MALEATE
     Dosage: 5 MG
  2. LEVETIRACETAM. [Concomitant]
     Active Substance: LEVETIRACETAM
  3. VALPROIC ACID (NON-SPECIFIC) [Suspect]
     Active Substance: VALPROIC ACID
     Indication: EPILEPSY
  4. CLONAZEPAM. [Concomitant]
     Active Substance: CLONAZEPAM
  5. TOPIRAMATE. [Concomitant]
     Active Substance: TOPIRAMATE

REACTIONS (1)
  - Renal tubular injury [Unknown]
